FAERS Safety Report 9867250 (Version 2)
Quarter: 2014Q1

REPORT INFORMATION
  Report Type: Report from Study
  Country: DE (occurrence: DE)
  Receive Date: 20140204
  Receipt Date: 20140204
  Transmission Date: 20141002
  Serious: Yes (Death, Hospitalization, Other)
  Sender: FDA-Public Use
  Company Number: DE-BRISTOL-MYERS SQUIBB COMPANY-19958917

PATIENT
  Age: 60 Year
  Sex: Male
  Weight: 88 kg

DRUGS (3)
  1. CETUXIMAB [Suspect]
     Indication: NON-SMALL CELL LUNG CANCER
     Dosage: IV INF,400MG/M2,ONCE:02MAR11,250MG/M2:09-16MAR11,240MG/M2:29MAR11
     Route: 042
     Dates: start: 20110302
  2. CISPLATIN [Suspect]
     Indication: NON-SMALL CELL LUNG CANCER
     Dosage: MOST RECENT DOSE ON 29-MAR-2011
     Route: 042
     Dates: start: 20110302
  3. DOCETAXEL [Suspect]
     Indication: NON-SMALL CELL LUNG CANCER
     Dosage: DAY 1 OF CYCLE,35MG/M2,75MG/M2:02-02MAR11,70MG/M2:29MAR11
     Route: 042
     Dates: start: 20110302

REACTIONS (2)
  - Pneumonia [Fatal]
  - Nausea [Not Recovered/Not Resolved]
